FAERS Safety Report 9315003 (Version 1)
Quarter: 2013Q2

REPORT INFORMATION
  Report Type: Report from Study
  Country: DE (occurrence: DE)
  Receive Date: 20130529
  Receipt Date: 20130529
  Transmission Date: 20140414
  Serious: Yes (Life-Threatening, Hospitalization)
  Sender: FDA-Public Use
  Company Number: DE-GLAXOSMITHKLINE-B0894773A

PATIENT
  Age: 48 Year
  Sex: Female
  Weight: 63 kg

DRUGS (9)
  1. LAPATINIB [Suspect]
     Indication: BREAST CANCER
     Route: 048
     Dates: start: 20121011, end: 20121210
  2. MYOCET [Suspect]
     Indication: BREAST CANCER
     Dosage: 20MGM2 WEEKLY
     Route: 042
     Dates: start: 20121011, end: 20121206
  3. TRASTUZUMAB [Suspect]
     Indication: BREAST CANCER
     Dosage: 6MGK EVERY 3 WEEKS
     Route: 042
     Dates: start: 20121010
  4. PACLITAXEL [Suspect]
     Indication: BREAST CANCER
     Route: 042
     Dates: start: 20121011, end: 20121206
  5. FILGRASTIM [Concomitant]
     Dates: start: 20121116, end: 20121208
  6. DEXAMETHASON [Concomitant]
     Dosage: 8MG PER DAY
     Dates: start: 20121011, end: 20121206
  7. FENISTIL [Concomitant]
     Dosage: 4MG PER DAY
     Dates: start: 20121011, end: 20121206
  8. RANITIDIN [Concomitant]
     Dosage: 50MG PER DAY
     Dates: start: 20121011, end: 20121206
  9. KEVATRIL [Concomitant]
     Dosage: 1MG PER DAY
     Dates: start: 20121011, end: 20121129

REACTIONS (1)
  - Sepsis [Recovered/Resolved]
